FAERS Safety Report 9314625 (Version 1)
Quarter: 2013Q2

REPORT INFORMATION
  Report Type: Spontaneous
  Country: US (occurrence: US)
  Receive Date: 20130529
  Receipt Date: 20130529
  Transmission Date: 20140414
  Serious: Yes (Other)
  Sender: FDA-Public Use
  Company Number: US-BAYER-2013-064488

PATIENT
  Age: 80 Year
  Sex: Female
  Weight: 77.1 kg

DRUGS (4)
  1. BAYER GENUINE ASPIRIN ORIGINAL STRENGTH [Suspect]
     Dosage: 1 DF, QD
     Route: 048
     Dates: end: 201302
  2. ALEVE CAPLET [Suspect]
     Dosage: 2 DF, QD
     Route: 048
     Dates: start: 201302
  3. BENICAR [Concomitant]
  4. CRESTOR [Concomitant]

REACTIONS (3)
  - Retinal degeneration [Not Recovered/Not Resolved]
  - Incorrect drug administration duration [None]
  - Incorrect drug administration duration [None]
